FAERS Safety Report 8767054 (Version 1)
Quarter: 2012Q4

REPORT INFORMATION
  Report Type: 
  Country: DE (occurrence: DE)
  Receive Date: 20120904
  Receipt Date: 20120904
  Transmission Date: 20130627
  Serious: Yes (Hospitalization, Congenital Anomaly)
  Sender: FDA-Public Use
  Company Number: GXKR2012DE002782

PATIENT
  Sex: Female
  Weight: 1.62 kg

DRUGS (12)
  1. PROMETHAZINE [Suspect]
     Dosage: Maternal dose: 10 mg, TID
     Route: 064
  2. PROMETHAZINE [Suspect]
     Dosage: 50 mg, QID
     Route: 064
  3. RISPERDAL [Suspect]
     Dosage: Maternal dose: 25 mg until gw5 every 2 wks, afterwards every 3 wks.
     Route: 064
  4. SEROQUEL [Suspect]
     Dosage: Maternal dose: 400 mg/d, reduction to 200 mg/d since gw5
     Route: 064
  5. SEROQUEL [Suspect]
     Dosage: Maternal dose: 200 mg/day
     Route: 064
  6. MELPERONE [Concomitant]
     Route: 064
  7. TOLPERISONE [Concomitant]
     Route: 064
  8. CARBAMAZEPINE [Concomitant]
     Dosage: Maternal dose: 100 mg, TID
     Route: 064
  9. IBUPROFEN [Concomitant]
     Indication: TRIGEMINAL NEURALGIA
     Route: 064
  10. BETAMETHASONE [Concomitant]
     Dosage: Maternal dose: 12 mg/day
     Route: 064
  11. ACETYLSALICYLIC ACID [Concomitant]
     Dosage: Maternal dose: 100 mg/day
     Route: 064
     Dates: end: 20111120
  12. INSULIN [Concomitant]

REACTIONS (4)
  - Oesophageal atresia [Recovered/Resolved with Sequelae]
  - Tracheo-oesophageal fistula [Recovered/Resolved with Sequelae]
  - Haemangioma congenital [Unknown]
  - Foetal exposure during pregnancy [Unknown]
